FAERS Safety Report 9433857 (Version 2)
Quarter: 2014Q2

REPORT INFORMATION
  Report Type: Spontaneous
  Country: US (occurrence: US)
  Receive Date: 20130731
  Receipt Date: 20140510
  Transmission Date: 20141212
  Serious: No
  Sender: FDA-Public Use
  Company Number: US-ASTRAZENECA-2013SE52649

PATIENT
  Age: 52 Year
  Sex: Male

DRUGS (4)
  1. SEROQUEL [Suspect]
     Indication: INSOMNIA
     Dosage: 50 MG TWICE DAILY AND 100 MG AT NIGHT, TOTAL 200 MG/DAY
     Route: 048
  2. SEROQUEL [Suspect]
     Indication: BIPOLAR DISORDER
     Dosage: 50 MG TWICE DAILY AND 100 MG AT NIGHT, TOTAL 200 MG/DAY
     Route: 048
  3. SEROQUEL [Suspect]
     Indication: INSOMNIA
     Route: 048
  4. SEROQUEL [Suspect]
     Indication: BIPOLAR DISORDER
     Route: 048

REACTIONS (2)
  - Depression [Unknown]
  - Intentional product misuse [Unknown]
